FAERS Safety Report 7396811-3 (Version None)
Quarter: 2011Q2

REPORT INFORMATION
  Report Type: 
  Country: None (occurrence: None)
  Receive Date: 20110406
  Receipt Date: 20100116
  Transmission Date: 20111010
  Serious: Yes (Death, Other)
  Sender: FDA-Public Use
  Company Number: US-BAYER-201011192NA

PATIENT
  Sex: Male
  Weight: 77.551 kg

DRUGS (5)
  1. TOPROL-XL [Concomitant]
     Dosage: 12.5 MG, QD
     Route: 048
     Dates: start: 20030112, end: 20070101
  2. GENTAMICIN [Concomitant]
     Dosage: 80 MG, UNK
     Route: 042
     Dates: start: 20021119
  3. LIPITOR [Concomitant]
     Dosage: 10 MG, QD
     Route: 048
     Dates: start: 19980101, end: 20070101
  4. TRASYLOL [Suspect]
     Indication: CORONARY ARTERY BYPASS
     Dates: start: 20021201
  5. VANCOMYCIN [Concomitant]
     Dosage: 1.5 G, UNK
     Route: 042
     Dates: start: 20021119

REACTIONS (15)
  - DEATH [None]
  - CARDIAC DISORDER [None]
  - RENAL INJURY [None]
  - RENAL IMPAIRMENT [None]
  - CEREBROVASCULAR ACCIDENT [None]
  - INJURY [None]
  - UNEVALUABLE EVENT [None]
  - FEAR [None]
  - PAIN [None]
  - RENAL HAEMORRHAGE [None]
  - DEPRESSION [None]
  - ANHEDONIA [None]
  - ORGAN FAILURE [None]
  - ANXIETY [None]
  - RENAL FAILURE [None]
